FAERS Safety Report 9684216 (Version 2)
Quarter: 2013Q4

REPORT INFORMATION
  Report Type: Spontaneous
  Country: US (occurrence: US)
  Receive Date: 20131112
  Receipt Date: 20131122
  Transmission Date: 20140711
  Serious: Yes (Hospitalization)
  Sender: FDA-Public Use
  Company Number: US-GLAXOSMITHKLINE-A1048465A

PATIENT
  Age: 63 Year
  Sex: Male

DRUGS (8)
  1. IMITREX [Suspect]
     Indication: MIGRAINE
     Route: 058
  2. DEVICE [Suspect]
     Indication: MIGRAINE
     Route: 058
  3. IMITREX [Suspect]
     Indication: MIGRAINE
     Route: 048
  4. VERAPAMIL [Concomitant]
     Indication: PRODUCT USED FOR UNKNOWN INDICATION
     Route: 065
  5. TOPAMAX [Concomitant]
  6. AMITRIPTYLINE [Concomitant]
  7. TRAMADOL [Concomitant]
  8. CHOLESTEROL REDUCING AGENT NAME NOT KNOWN [Concomitant]

REACTIONS (2)
  - Colitis ischaemic [Unknown]
  - Headache [Unknown]
